FAERS Safety Report 8204781-0 (Version None)
Quarter: 2012Q1

REPORT INFORMATION
  Report Type: 
  Country: None (occurrence: None)
  Receive Date: 20120313
  Receipt Date: 20120302
  Transmission Date: 20120608
  Serious: Yes (Hospitalization)
  Sender: FDA-Public Use
  Company Number: US-JNJFOC-20120302412

PATIENT
  Sex: Female
  Weight: 33.4 kg

DRUGS (10)
  1. REMICADE [Suspect]
     Route: 042
     Dates: start: 20111208
  2. MERCAPTOPURINE [Concomitant]
  3. PREVACID [Concomitant]
  4. REMICADE [Suspect]
     Indication: INFLAMMATORY BOWEL DISEASE
     Route: 042
     Dates: start: 20110828
  5. VITAMIN D [Concomitant]
  6. URSODIOL [Concomitant]
  7. MULTI-VITAMINS [Concomitant]
  8. BOOST [Concomitant]
  9. PREDNISONE [Concomitant]
  10. ACETAMINOPHEN [Concomitant]

REACTIONS (1)
  - ANAEMIA [None]
